FAERS Safety Report 14539447 (Version 12)
Quarter: 2025Q3

REPORT INFORMATION
  Report Type: Report from Study
  Country: CO (occurrence: CO)
  Receive Date: 20180216
  Receipt Date: 20250715
  Transmission Date: 20251021
  Serious: Yes (Hospitalization, Other)
  Sender: NOVARTIS
  Company Number: PHHY2017CO069455

PATIENT
  Age: 59 Year
  Sex: Female
  Weight: 82 kg

DRUGS (15)
  1. TYKERB [Suspect]
     Active Substance: LAPATINIB DITOSYLATE
     Indication: Breast cancer
     Dosage: 1000 MG, QD
     Route: 048
     Dates: start: 20161207
  2. TYKERB [Suspect]
     Active Substance: LAPATINIB DITOSYLATE
     Dosage: 750 MG, QD
     Route: 048
  3. TYKERB [Suspect]
     Active Substance: LAPATINIB DITOSYLATE
     Dosage: 1000 MG, QD
     Route: 048
  4. TYKERB [Suspect]
     Active Substance: LAPATINIB DITOSYLATE
     Dosage: 4 DOSAGE FORM, QD
     Route: 048
     Dates: start: 2016
  5. TYKERB [Suspect]
     Active Substance: LAPATINIB DITOSYLATE
     Dosage: 2 DOSAGE FORM, QD
     Route: 048
  6. TYKERB [Suspect]
     Active Substance: LAPATINIB DITOSYLATE
     Dosage: 1000 MG, QD
     Route: 048
     Dates: start: 20161208
  7. LOSARTAN [Suspect]
     Active Substance: LOSARTAN
     Indication: Hypertension
     Dosage: 50 MG, Q12H (APPROX. 3 YEARS)
     Route: 048
  8. ESOMEPRAZOLE [Suspect]
     Active Substance: ESOMEPRAZOLE
     Indication: Gastritis
     Dosage: 20 MG, QD (ONE DAY IN BETWEEN (AS ANY OTHER DAY)) SINCE 2 YEARS AGO
     Route: 048
  9. GAVISCON [Concomitant]
     Active Substance: ALUMINUM HYDROXIDE\MAGNESIUM CARBONATE
     Indication: Product used for unknown indication
     Route: 065
  10. RANITIDINE [Concomitant]
     Active Substance: RANITIDINE
     Indication: Product used for unknown indication
     Route: 065
  11. Vitamina A [Concomitant]
     Indication: Product used for unknown indication
     Route: 065
  12. TRASTUZUMAB [Concomitant]
     Active Substance: TRASTUZUMAB
     Indication: Breast cancer
     Route: 058
     Dates: start: 2014
  13. BIOTIN [Concomitant]
     Active Substance: BIOTIN
     Indication: Product used for unknown indication
     Route: 065
  14. Pepsamar [Concomitant]
     Indication: Product used for unknown indication
     Route: 065
  15. TRIMEBUTINE MALEATE [Concomitant]
     Active Substance: TRIMEBUTINE MALEATE
     Indication: Product used for unknown indication
     Route: 065

REACTIONS (51)
  - COVID-19 [Unknown]
  - Decreased immune responsiveness [Unknown]
  - Malaise [Unknown]
  - Gastrointestinal bacterial infection [Unknown]
  - Breast cancer [Unknown]
  - Malignant neoplasm progression [Unknown]
  - Skin haemorrhage [Unknown]
  - Condition aggravated [Unknown]
  - Rhinalgia [Recovering/Resolving]
  - Pain in extremity [Unknown]
  - Localised infection [Unknown]
  - Toxicity to various agents [Unknown]
  - Dry eye [Unknown]
  - Nasal dryness [Recovering/Resolving]
  - Acne [Unknown]
  - Chronic gastritis [Unknown]
  - Vulvovaginal burning sensation [Unknown]
  - Skin burning sensation [Unknown]
  - Nail discolouration [Unknown]
  - Burning sensation [Unknown]
  - Influenza [Unknown]
  - Onychalgia [Unknown]
  - Feeling of despair [Unknown]
  - Skin atrophy [Unknown]
  - Pain of skin [Recovering/Resolving]
  - Skin abrasion [Unknown]
  - Gait disturbance [Unknown]
  - Limb injury [Recovering/Resolving]
  - Paronychia [Recovering/Resolving]
  - Skin sensitisation [Recovering/Resolving]
  - Pyrexia [Unknown]
  - Oropharyngeal pain [Recovering/Resolving]
  - Stress [Recovering/Resolving]
  - Vulvovaginal dryness [Recovering/Resolving]
  - Skin exfoliation [Unknown]
  - Diarrhoea [Recovering/Resolving]
  - Onychoclasis [Unknown]
  - Nail infection [Recovering/Resolving]
  - Nail disorder [Unknown]
  - Onychomadesis [Unknown]
  - Arthralgia [Unknown]
  - Dyspepsia [Unknown]
  - Abdominal pain upper [Unknown]
  - Headache [Unknown]
  - Rash [Unknown]
  - Oral mucosal exfoliation [Not Recovered/Not Resolved]
  - Oral mucosal eruption [Unknown]
  - Tongue exfoliation [Not Recovered/Not Resolved]
  - Illness [Unknown]
  - Dry skin [Recovering/Resolving]
  - Vaginal disorder [Unknown]

NARRATIVE: CASE EVENT DATE: 20161207
